FAERS Safety Report 8504190-0 (Version None)
Quarter: 2012Q3

REPORT INFORMATION
  Report Type: 
  Country: None (occurrence: None)
  Receive Date: 20120711
  Receipt Date: 20120704
  Transmission Date: 20120928
  Serious: Yes (Other)
  Sender: FDA-Public Use
  Company Number: JP-BAXTER-2012BAX010767

PATIENT
  Age: 14 Year
  Sex: Female

DRUGS (1)
  1. IFOSFAMIDE [Suspect]
     Indication: EWING'S SARCOMA

REACTIONS (1)
  - BONE SARCOMA [None]
